FAERS Safety Report 17869743 (Version 1)
Quarter: 2020Q2

REPORT INFORMATION
  Report Type: Spontaneous
  Country: CA (occurrence: CA)
  Receive Date: 20200608
  Receipt Date: 20200608
  Transmission Date: 20200714
  Serious: Yes (Other)
  Sender: FDA-Public Use
  Company Number: CA-ORION CORPORATION ORION PHARMA-TREX2020-2205

PATIENT
  Age: 49 Year
  Sex: Female

DRUGS (4)
  1. CLONAZEPAM. [Concomitant]
     Active Substance: CLONAZEPAM
     Route: 065
  2. WELLBUTRIN [Concomitant]
     Active Substance: BUPROPION HYDROCHLORIDE
     Route: 065
  3. METHOTREXATE (TRADE NAME UNKNOWN) [Suspect]
     Active Substance: METHOTREXATE
     Indication: PRODUCT USED FOR UNKNOWN INDICATION
     Route: 065
     Dates: start: 2018
  4. IMODIUM [Concomitant]
     Active Substance: LOPERAMIDE HYDROCHLORIDE
     Route: 065

REACTIONS (12)
  - Nausea [Unknown]
  - Fatigue [Unknown]
  - Osteoarthritis [Unknown]
  - Epicondylitis [Unknown]
  - Anxiety [Recovering/Resolving]
  - Abdominal discomfort [Unknown]
  - C-reactive protein increased [Unknown]
  - Diarrhoea [Recovering/Resolving]
  - Joint dislocation [Unknown]
  - Depression [Recovering/Resolving]
  - Pain [Unknown]
  - Bursitis [Unknown]

NARRATIVE: CASE EVENT DATE: 201901
